FAERS Safety Report 7755579-9 (Version None)
Quarter: 2011Q3

REPORT INFORMATION
  Report Type: 
  Country: None (occurrence: None)
  Receive Date: 20110825
  Receipt Date: 20110722
  Transmission Date: 20111222
  Serious: No
  Sender: FDA-Public Use
  Company Number: 332720

PATIENT
  Age: 61 Year
  Sex: Male

DRUGS (2)
  1. VICTOZA [Suspect]
     Indication: TYPE 2 DIABETES MELLITUS
     Dosage: 1.8 MG, QD, SUBCUTANEOUS
     Route: 058
  2. APIDRA (INSULIN GLARGINE) [Concomitant]

REACTIONS (3)
  - ERUCTATION [None]
  - DIARRHOEA [None]
  - FLATULENCE [None]
